FAERS Safety Report 4331812-0 (Version None)
Quarter: 2004Q1

REPORT INFORMATION
  Report Type: 
  Country: None (occurrence: None)
  Receive Date: 20040329
  Receipt Date: 20040316
  Transmission Date: 20041129
  Serious: Yes (Hospitalization, Other)
  Sender: FDA-Public Use
  Company Number: 2003EU006751

PATIENT
  Age: 65 Year
  Sex: Male

DRUGS (3)
  1. TACROLIMUS CAPSULES (TACROLIMUS) CAPSULE [Suspect]
     Indication: LUNG TRANSPLANT
     Dosage: 0.50 MG, UNK; ORAL
     Route: 048
     Dates: start: 20010627, end: 20021216
  2. MYCOPHENOLATE MOFETIL [Concomitant]
  3. PREDNISONE [Concomitant]

REACTIONS (5)
  - BRONCHOPULMONARY ASPERGILLOSIS [None]
  - CATARACT [None]
  - LUNG INFECTION PSEUDOMONAL [None]
  - OPTIC NEURITIS [None]
  - OPTIC NEUROPATHY [None]
